FAERS Safety Report 11328796 (Version 2)
Quarter: 2015Q4

REPORT INFORMATION
  Report Type: Report from Study
  Country: GB (occurrence: GB)
  Receive Date: 20150731
  Receipt Date: 20151015
  Transmission Date: 20160304
  Serious: Yes (Hospitalization)
  Sender: FDA-Public Use
  Company Number: PHHO2015GB012259

PATIENT
  Age: 69 Year
  Sex: Male
  Weight: 101 kg

DRUGS (6)
  1. AMLODIPINE [Suspect]
     Active Substance: AMLODIPINE BESYLATE
     Indication: PRODUCT USED FOR UNKNOWN INDICATION
     Dosage: 10 MG, UNK
     Route: 048
     Dates: start: 20140919
  2. RAMIPRIL. [Suspect]
     Active Substance: RAMIPRIL
     Indication: HYPERTENSION
     Dosage: 10 MG, UNK
     Route: 048
     Dates: start: 20140919
  3. BLINDED AIN457 [Suspect]
     Active Substance: SECUKINUMAB
     Indication: PSORIASIS
     Dosage: CODE NOT BROKEN
     Route: 058
     Dates: start: 20140625
  4. BLINDED NO TREATMENT RECEIVED [Suspect]
     Active Substance: INVESTIGATIONAL PRODUCT
     Indication: PSORIASIS
     Dosage: CODE NOT BROKEN
     Route: 058
     Dates: start: 20140625
  5. BLINDED USTEKINUMAB [Suspect]
     Active Substance: USTEKINUMAB
     Indication: PSORIASIS
     Dosage: CODE NOT BROKEN
     Route: 058
     Dates: start: 20140625
  6. INDAPAMIDE. [Suspect]
     Active Substance: INDAPAMIDE
     Indication: URINARY RETENTION
     Dosage: 2.5 MG, UNK
     Route: 048
     Dates: start: 20150210

REACTIONS (1)
  - Hyponatraemia [Recovered/Resolved]

NARRATIVE: CASE EVENT DATE: 20150705
